FAERS Safety Report 23616614 (Version 2)
Quarter: 2024Q2

REPORT INFORMATION
  Report Type: Spontaneous
  Country: PL (occurrence: PL)
  Receive Date: 20240311
  Receipt Date: 20240403
  Transmission Date: 20240716
  Serious: Yes (Life-Threatening, Other)
  Sender: FDA-Public Use
  Company Number: PL-PFM-2023-07185

PATIENT
  Age: 5 Year
  Sex: Male

DRUGS (31)
  1. CARBOPLATIN [Suspect]
     Active Substance: CARBOPLATIN
     Indication: Neuroblastoma
     Dosage: UNK
     Route: 065
  2. CARBOPLATIN [Suspect]
     Active Substance: CARBOPLATIN
     Indication: Ganglioneuroblastoma
  3. CARBOPLATIN [Suspect]
     Active Substance: CARBOPLATIN
     Indication: Metastases to bone
  4. CARBOPLATIN [Suspect]
     Active Substance: CARBOPLATIN
     Indication: Metastases to bone marrow
  5. CARBOPLATIN [Suspect]
     Active Substance: CARBOPLATIN
     Indication: Metastases to lymph nodes
  6. CISPLATIN [Suspect]
     Active Substance: CISPLATIN
     Indication: Neuroblastoma
     Dosage: UNK
     Route: 065
  7. CISPLATIN [Suspect]
     Active Substance: CISPLATIN
     Indication: Ganglioneuroblastoma
  8. CISPLATIN [Suspect]
     Active Substance: CISPLATIN
     Indication: Metastases to bone
  9. CISPLATIN [Suspect]
     Active Substance: CISPLATIN
     Indication: Metastases to bone marrow
  10. CISPLATIN [Suspect]
     Active Substance: CISPLATIN
     Indication: Metastases to lymph nodes
  11. CYCLOPHOSPHAMIDE [Suspect]
     Active Substance: CYCLOPHOSPHAMIDE
     Indication: Ganglioneuroblastoma
     Dosage: UNK
     Route: 065
  12. CYCLOPHOSPHAMIDE [Suspect]
     Active Substance: CYCLOPHOSPHAMIDE
     Indication: Metastases to bone
  13. CYCLOPHOSPHAMIDE [Suspect]
     Active Substance: CYCLOPHOSPHAMIDE
     Indication: Metastases to bone marrow
  14. CYCLOPHOSPHAMIDE [Suspect]
     Active Substance: CYCLOPHOSPHAMIDE
     Indication: Metastases to lymph nodes
  15. CYCLOPHOSPHAMIDE [Suspect]
     Active Substance: CYCLOPHOSPHAMIDE
     Indication: Neuroblastoma
  16. DINUTUXIMAB [Suspect]
     Active Substance: DINUTUXIMAB
     Indication: Ganglioneuroblastoma
     Dosage: UNK
     Route: 065
  17. ETOPOSIDE [Suspect]
     Active Substance: ETOPOSIDE
     Indication: Neuroblastoma
     Dosage: UNK
     Route: 065
  18. ETOPOSIDE [Suspect]
     Active Substance: ETOPOSIDE
     Indication: Ganglioneuroblastoma
  19. ETOPOSIDE [Suspect]
     Active Substance: ETOPOSIDE
     Indication: Metastases to bone
  20. ETOPOSIDE [Suspect]
     Active Substance: ETOPOSIDE
     Indication: Metastases to bone marrow
  21. ETOPOSIDE [Suspect]
     Active Substance: ETOPOSIDE
     Indication: Metastases to lymph nodes
  22. ISOTRETINOIN [Suspect]
     Active Substance: ISOTRETINOIN
     Indication: Ganglioneuroblastoma
     Dosage: UNK
     Route: 065
  23. ISOTRETINOIN [Suspect]
     Active Substance: ISOTRETINOIN
     Indication: Immunochemotherapy
  24. ISOTRETINOIN [Suspect]
     Active Substance: ISOTRETINOIN
     Indication: Off label use
  25. VINCRISTINE [Suspect]
     Active Substance: VINCRISTINE
     Indication: Neuroblastoma
     Dosage: UNK
     Route: 065
  26. VINCRISTINE [Suspect]
     Active Substance: VINCRISTINE
     Indication: Ganglioneuroblastoma
  27. VINCRISTINE [Suspect]
     Active Substance: VINCRISTINE
     Indication: Metastases to bone
  28. VINCRISTINE [Suspect]
     Active Substance: VINCRISTINE
     Indication: Metastases to bone marrow
  29. VINCRISTINE [Suspect]
     Active Substance: VINCRISTINE
     Indication: Metastases to lymph nodes
  30. NALBUPHINE [Concomitant]
     Active Substance: NALBUPHINE
     Indication: Pain in extremity
     Dosage: UNK
     Route: 065
  31. NALBUPHINE [Concomitant]
     Active Substance: NALBUPHINE
     Indication: Abdominal pain

REACTIONS (7)
  - Leukopenia [Unknown]
  - Liver injury [Unknown]
  - Anaemia [Unknown]
  - Infection [Unknown]
  - Eating disorder [Unknown]
  - Product use in unapproved indication [Unknown]
  - Off label use [Unknown]
